FAERS Safety Report 23105745 (Version 2)
Quarter: 2024Q1

REPORT INFORMATION
  Report Type: Report from Study
  Country: US (occurrence: US)
  Receive Date: 20231025
  Receipt Date: 20240202
  Transmission Date: 20240410
  Serious: Yes (Hospitalization)
  Sender: FDA-Public Use
  Company Number: US-AMRYT PHARMACEUTICALS DAC-AEGR006723

PATIENT
  Sex: Female

DRUGS (2)
  1. JUXTAPID [Suspect]
     Active Substance: LOMITAPIDE MESYLATE
     Indication: Type IIa hyperlipidaemia
     Dosage: 20 MILLIGRAM, QD (ONE CAPSULE TWO HOURS AFTER EVENING MEAL)
     Route: 048
  2. EVKEEZA [EVINACUMAB] [Concomitant]
     Indication: Product used for unknown indication
     Dosage: INFUSION

REACTIONS (6)
  - Coronary artery occlusion [Unknown]
  - Catheter site thrombosis [Unknown]
  - Low density lipoprotein increased [Unknown]
  - Apathy [Unknown]
  - Gastrointestinal disorder [Unknown]
  - Diet noncompliance [Unknown]
